FAERS Safety Report 4556138-1 (Version None)
Quarter: 2005Q1

REPORT INFORMATION
  Report Type: 
  Country: None (occurrence: None)
  Receive Date: 20050114
  Receipt Date: 20050105
  Transmission Date: 20050727
  Serious: Yes (Hospitalization)
  Sender: FDA-Public Use
  Company Number: K200500011

PATIENT
  Age: 42 Year
  Sex: Female

DRUGS (8)
  1. SEPTRA [Suspect]
     Indication: PNEUMOCYSTIS JIROVECI PNEUMONIA
     Dosage: 1.92 G, QID, INTRAVENOUS
     Route: 042
     Dates: start: 20030427
  2. LANSOPRAZOLE [Concomitant]
  3. CEFUROXIME SODIUM (CEFUROXIME SODIUM) [Concomitant]
  4. ACETAMINOPHEN [Concomitant]
  5. FLUCONAZOLE [Concomitant]
  6. RIFATER (PYRAZINAMIDE, ISONIAZID, ALUMINIUM HYDROXIDE GEL, RIFAMPICIN) [Concomitant]
  7. ETHAMBUTOL (ETHAMBUTOL) [Concomitant]
  8. PYRIDOXINE (PYRIDOXINE) [Concomitant]

REACTIONS (1)
  - METABOLIC ACIDOSIS [None]
